FAERS Safety Report 5230549-3 (Version None)
Quarter: 2007Q1

REPORT INFORMATION
  Report Type: 
  Country: None (occurrence: None)
  Receive Date: 20070206
  Receipt Date: 20070126
  Transmission Date: 20070707
  Serious: Yes (Other)
  Sender: FDA-Public Use
  Company Number: GB-GLAXOSMITHKLINE-B0454048A

PATIENT
  Age: 52 Year
  Sex: Female
  Weight: 45.4 kg

DRUGS (6)
  1. COMBIVIR [Suspect]
     Dosage: 1UNIT TWICE PER DAY
     Route: 048
  2. FOSAMPRENAVIR [Suspect]
     Dosage: 700MG TWICE PER DAY
     Route: 048
     Dates: start: 20061219, end: 20061228
  3. ATAZANAVIR [Suspect]
  4. ZIDOVUDINE [Concomitant]
  5. RITONAVIR [Concomitant]
     Dosage: 100MG TWICE PER DAY
  6. ORAL HYPOGLYCEMIC [Concomitant]

REACTIONS (3)
  - MALAISE [None]
  - NEPHROLITHIASIS [None]
  - RASH [None]
